FAERS Safety Report 22059916 (Version 1)
Quarter: 2023Q1

REPORT INFORMATION
  Report Type: Other
  Country: CA (occurrence: None)
  Receive Date: 20230303
  Receipt Date: 20230303
  Transmission Date: 20230417
  Serious: Yes (Other)
  Sender: FDA-Public Use
  Company Number: CA-ROCHE-3295913

PATIENT
  Age: 5 Day
  Sex: Male
  Weight: 0.98 kg

DRUGS (10)
  1. GANCICLOVIR SODIUM [Suspect]
     Active Substance: GANCICLOVIR SODIUM
     Indication: Congenital cytomegalovirus infection
     Dosage: IV INFUSION VIA A CENTRAL LINE OVER 1 HOUR ON DOL 5/SUSPENDED AT DOL 10
     Route: 042
  2. GANCICLOVIR SODIUM [Suspect]
     Active Substance: GANCICLOVIR SODIUM
     Dosage: PLASMA GCV PEAK/TROUGH CONCENTRATIONS, MG/L: 2.55/1.56?IV INFUSION REINSTATED ON DOL 20
     Route: 042
  3. GANCICLOVIR SODIUM [Suspect]
     Active Substance: GANCICLOVIR SODIUM
     Dosage: IV GANCICLOVIR TREATMENT WAS REINSTATED AT DOL 28
     Route: 042
  4. GANCICLOVIR SODIUM [Suspect]
     Active Substance: GANCICLOVIR SODIUM
     Dosage: IV GANCICLOVIR TREATMENT WAS REINSTATED AT DOL 28
     Route: 042
  5. GANCICLOVIR SODIUM [Suspect]
     Active Substance: GANCICLOVIR SODIUM
     Dosage: 4 MG/KG RECEIVED AFTER 12 HRS?IV GANCICLOVIR TREATMENT WAS REINSTATED AT DOL 36
     Route: 042
  6. GANCICLOVIR SODIUM [Suspect]
     Active Substance: GANCICLOVIR SODIUM
     Dosage: 5.6 MG/KG RECEIVED AFTER 12 HRS?IV GANCICLOVIR TREATMENT WAS REINSTATED AT DOL 48
     Route: 042
  7. GANCICLOVIR SODIUM [Suspect]
     Active Substance: GANCICLOVIR SODIUM
     Dosage: 5.4 MG/KG RECEIVED AFTER 12 HRS?IV GANCICLOVIR TREATMENT WAS REINSTATED AT DOL 55
     Route: 042
  8. VALCYTE [Suspect]
     Active Substance: VALGANCICLOVIR HYDROCHLORIDE
     Indication: Congenital cytomegalovirus infection
     Dosage: 7.4 MG/KG/DOSE ON DOL 59
     Route: 048
  9. VALCYTE [Suspect]
     Active Substance: VALGANCICLOVIR HYDROCHLORIDE
     Dosage: 14.2 MG/KG RECEIVED AFTER 12 HRS ON DOL 69
     Route: 048
  10. VALCYTE [Suspect]
     Active Substance: VALGANCICLOVIR HYDROCHLORIDE
     Dosage: 18 MG/KG RECEIVED AFTER 12 HRS ON DOL 84
     Route: 048

REACTIONS (4)
  - Neutropenia [Unknown]
  - Off label use [Unknown]
  - Thrombocytopenia [Unknown]
  - Off label use [Unknown]
